FAERS Safety Report 10356743 (Version 1)
Quarter: 2014Q3

REPORT INFORMATION
  Report Type: Spontaneous
  Country: US (occurrence: None)
  Receive Date: 20140730
  Receipt Date: 20140730
  Transmission Date: 20150326
  Serious: Yes (Other)
  Sender: FDA-Public Use
  Company Number: None

PATIENT
  Age: 83 Year
  Sex: Male
  Weight: 95.26 kg

DRUGS (16)
  1. VITAMIN D [Concomitant]
     Active Substance: CHOLECALCIFEROL
  2. ASA [Concomitant]
     Active Substance: ASPIRIN
  3. CALCIUM [Concomitant]
     Active Substance: CALCIUM
  4. TORSEMIDE. [Concomitant]
     Active Substance: TORSEMIDE
  5. LANUNA [Concomitant]
  6. LASIX [Concomitant]
     Active Substance: FUROSEMIDE
  7. MTX [Concomitant]
     Active Substance: METHOTREXATE SODIUM
  8. PREDNISONE. [Concomitant]
     Active Substance: PREDNISONE
  9. LANTUS [Concomitant]
     Active Substance: INSULIN GLARGINE
  10. WARFARIN [Concomitant]
     Active Substance: WARFARIN
  11. EXJADE [Suspect]
     Active Substance: DEFERASIROX
     Indication: THALASSAEMIA
     Route: 048
     Dates: start: 20140606, end: 20140729
  12. TANTOREN [Concomitant]
  13. TORSEMIDE. [Concomitant]
     Active Substance: TORSEMIDE
  14. LOSARTAN [Concomitant]
     Active Substance: LOSARTAN
  15. METFORMIN [Concomitant]
     Active Substance: METFORMIN HYDROCHLORIDE
  16. GLIMEPERIDE [Concomitant]
     Active Substance: GLIMEPIRIDE

REACTIONS (1)
  - Deafness [None]

NARRATIVE: CASE EVENT DATE: 20140728
